FAERS Safety Report 9026516 (Version 1)
Quarter: 2012Q4

REPORT INFORMATION
  Report Type: Spontaneous
  Country: US (occurrence: None)
  Receive Date: 20121214
  Receipt Date: 20121214
  Transmission Date: 20130627
  Serious: Yes (Death)
  Sender: FDA-Public Use
  Company Number: None

PATIENT
  Age: 74 Year
  Sex: Male

DRUGS (11)
  1. REVLIMID 5 MG CELGENE [Suspect]
     Indication: MULTIPLE MYELOMA
     Dosage: x21d/28d
     Route: 048
     Dates: start: 201201, end: 201207
  2. AMIODARONE [Concomitant]
  3. MIDODRINE [Concomitant]
  4. NTG [Concomitant]
  5. GABAPENTIN [Concomitant]
  6. OMEPRAZOLE [Concomitant]
  7. CALCIUM ACETATE [Concomitant]
  8. BUMETANIDE [Concomitant]
  9. WARFARIN [Concomitant]
  10. MIRTAZAPINE [Concomitant]
  11. LEVOTHYROXINE [Concomitant]

REACTIONS (3)
  - Asthenia [None]
  - Toxicity to various agents [None]
  - Dialysis related complication [None]
